FAERS Safety Report 5848845-5 (Version None)
Quarter: 2008Q3

REPORT INFORMATION
  Report Type: 
  Country: None (occurrence: None)
  Receive Date: 20080818
  Receipt Date: 20080806
  Transmission Date: 20090109
  Serious: Yes (Other)
  Sender: FDA-Public Use
  Company Number: JP-PFIZER INC-2008043100

PATIENT
  Sex: Female

DRUGS (6)
  1. RELPAX [Suspect]
     Indication: HEADACHE
     Route: 048
     Dates: start: 20060101, end: 20080514
  2. SELBEX [Concomitant]
     Route: 048
  3. GASMOTIN [Concomitant]
     Route: 048
  4. FAMOTIDINE [Concomitant]
     Route: 048
  5. CELESTAMINE TAB [Concomitant]
     Route: 048
     Dates: start: 20080307, end: 20080416
  6. DEPAS [Concomitant]
     Route: 048
     Dates: start: 20080514, end: 20080528

REACTIONS (1)
  - ORAL DISCOMFORT [None]
